FAERS Safety Report 24005334 (Version 1)
Quarter: 2024Q2

REPORT INFORMATION
  Report Type: Spontaneous
  Country: US (occurrence: None)
  Receive Date: 20240621
  Receipt Date: 20240621
  Transmission Date: 20240715
  Serious: Yes (Disabling, Other)
  Sender: FDA-Public Use
  Company Number: None

PATIENT
  Age: 74 Year
  Sex: Female
  Weight: 49.9 kg

DRUGS (2)
  1. PROLIA [Suspect]
     Active Substance: DENOSUMAB
     Indication: Osteoporosis
     Dosage: OTHER FREQUENCY : EVERY 6 MONTHS;?
     Dates: start: 201907, end: 202311
  2. RECLAST [Suspect]
     Active Substance: ZOLEDRONIC ACID

REACTIONS (2)
  - Implantation complication [None]
  - Osteonecrosis [None]

NARRATIVE: CASE EVENT DATE: 20220401
